FAERS Safety Report 12270211 (Version 3)
Quarter: 2016Q4

REPORT INFORMATION
  Report Type: Report from Study
  Country: US (occurrence: US)
  Receive Date: 20160415
  Receipt Date: 20161107
  Transmission Date: 20170207
  Serious: Yes (Other)
  Sender: FDA-Public Use
  Company Number: PHEH2016US009302

PATIENT
  Age: 41 Year
  Sex: Female
  Weight: 70.3 kg

DRUGS (4)
  1. GILENYA [Suspect]
     Active Substance: FINGOLIMOD HYDROCHLORIDE
     Indication: MULTIPLE SCLEROSIS
     Dosage: 0.5 MG, QD
     Route: 048
     Dates: start: 20141030
  2. GILENYA [Suspect]
     Active Substance: FINGOLIMOD HYDROCHLORIDE
     Dosage: 0.5 MG, QD
     Route: 048
     Dates: start: 20151006, end: 20161017
  3. VITAMIN D3 [Concomitant]
     Active Substance: CHOLECALCIFEROL
     Indication: PRODUCT USED FOR UNKNOWN INDICATION
     Dosage: 5000 U, QD
     Route: 048
     Dates: start: 20151208
  4. ATIVAN [Concomitant]
     Active Substance: LORAZEPAM
     Indication: ANXIETY
     Dosage: 0.5 MG, Q6H
     Route: 048
     Dates: start: 20150804

REACTIONS (17)
  - Tricuspid valve incompetence [Unknown]
  - Pulmonary valve incompetence [Unknown]
  - Atrial septal defect [Unknown]
  - Central nervous system lesion [Unknown]
  - Muscle tightness [Unknown]
  - Fatigue [Unknown]
  - Mitral valve incompetence [Unknown]
  - Carotid artery stenosis [Unknown]
  - Blood pressure decreased [Unknown]
  - Depressed level of consciousness [Recovered/Resolved]
  - Cyst [Unknown]
  - Aphasia [Recovered/Resolved]
  - Headache [Unknown]
  - Visual field defect [Unknown]
  - Transient ischaemic attack [Unknown]
  - Vomiting [Unknown]
  - Disorganised speech [Recovered/Resolved]

NARRATIVE: CASE EVENT DATE: 20160119
